FAERS Safety Report 6607162-6 (Version None)
Quarter: 2010Q1

REPORT INFORMATION
  Report Type: 
  Country: None (occurrence: None)
  Receive Date: 20100212
  Receipt Date: 20091029
  Transmission Date: 20100710
  Serious: No
  Sender: FDA-Public Use
  Company Number: 1000009771

PATIENT
  Age: 48 Year
  Sex: Female

DRUGS (3)
  1. SAVELLA [Suspect]
     Indication: FIBROMYALGIA
     Dosage: 12.5 MG (12.5 MG, 1 IN 1 D), ORAL : 25 MG (12.5 MG, 2 IN 1 D), ORAL : 100 MG (50 MG, 2 IN 1 D), ORAL
     Route: 048
     Dates: start: 20091008, end: 20091008
  2. SAVELLA [Suspect]
     Indication: FIBROMYALGIA
     Dosage: 12.5 MG (12.5 MG, 1 IN 1 D), ORAL : 25 MG (12.5 MG, 2 IN 1 D), ORAL : 100 MG (50 MG, 2 IN 1 D), ORAL
     Route: 048
     Dates: start: 20091009, end: 20091010
  3. SAVELLA [Suspect]
     Indication: FIBROMYALGIA
     Dosage: 12.5 MG (12.5 MG, 1 IN 1 D), ORAL : 25 MG (12.5 MG, 2 IN 1 D), ORAL : 100 MG (50 MG, 2 IN 1 D), ORAL
     Route: 048
     Dates: start: 20091011

REACTIONS (1)
  - RASH [None]
